FAERS Safety Report 10192082 (Version 2)
Quarter: 2014Q2

REPORT INFORMATION
  Report Type: Spontaneous
  Country: US (occurrence: US)
  Receive Date: 20140523
  Receipt Date: 20140523
  Transmission Date: 20141212
  Serious: No
  Sender: FDA-Public Use
  Company Number: US-PFIZER INC-2014135484

PATIENT
  Age: 71 Year
  Sex: Male
  Weight: 113.38 kg

DRUGS (4)
  1. DEPO-TESTOSTERONE [Suspect]
     Indication: BLOOD TESTOSTERONE DECREASED
     Dosage: UNK
  2. DEPO-TESTOSTERONE [Suspect]
     Indication: FATIGUE
     Dosage: UNK
  3. DEPO-TESTOSTERONE [Suspect]
     Indication: FATIGUE
  4. DEPO-TESTOSTERONE [Suspect]
     Indication: DEPRESSION

REACTIONS (2)
  - Drug ineffective [Unknown]
  - Product quality issue [Unknown]
